FAERS Safety Report 6385835-0 (Version None)
Quarter: 2009Q4

REPORT INFORMATION
  Report Type: 
  Country: None (occurrence: None)
  Receive Date: 20091002
  Receipt Date: 20090924
  Transmission Date: 20100525
  Serious: Yes (Death, Hospitalization)
  Sender: FDA-Public Use
  Company Number: AU-AMGEN-US363241

PATIENT
  Sex: Male

DRUGS (11)
  1. PANITUMUMAB [Suspect]
     Indication: COLORECTAL CANCER
     Route: 042
     Dates: start: 20090811, end: 20090825
  2. AMG 102 - BLINDED [Suspect]
     Indication: NEOPLASM MALIGNANT
     Route: 042
     Dates: start: 20090811, end: 20090825
  3. AMG 479 - BLINDED [Suspect]
     Indication: NEOPLASM
     Route: 042
     Dates: start: 20090811, end: 20090825
  4. CLEXANE [Concomitant]
     Route: 058
     Dates: start: 20090714, end: 20090913
  5. FENTANYL [Concomitant]
     Route: 061
     Dates: start: 20090806, end: 20090906
  6. FENTANYL [Concomitant]
     Route: 061
     Dates: start: 20090907
  7. FENTANYL [Concomitant]
     Route: 058
     Dates: start: 20090907, end: 20090909
  8. SOMAC [Concomitant]
     Route: 048
     Dates: start: 19700101
  9. OXYCONTIN [Concomitant]
     Route: 048
     Dates: start: 20090101, end: 20090906
  10. DOMPERIDONE [Concomitant]
     Route: 048
     Dates: start: 20090101, end: 20090906
  11. OXYNORM [Concomitant]
     Route: 048
     Dates: start: 20090810, end: 20090906

REACTIONS (2)
  - EASTERN COOPERATIVE ONCOLOGY GROUP PERFORMANCE STATUS WORSENED [None]
  - MALIGNANT NEOPLASM PROGRESSION [None]
